FAERS Safety Report 10072086 (Version 2)
Quarter: 2014Q2

REPORT INFORMATION
  Report Type: Spontaneous
  Country: BR (occurrence: BR)
  Receive Date: 20140411
  Receipt Date: 20140613
  Transmission Date: 20141212
  Serious: Yes (Death, Hospitalization)
  Sender: FDA-Public Use
  Company Number: BR-ASTRAZENECA-2014SE25219

PATIENT
  Age: 78 Year
  Sex: Female

DRUGS (2)
  1. BRILINTA [Suspect]
     Route: 048
     Dates: start: 2012
  2. OTHER [Concomitant]

REACTIONS (3)
  - Urinary tract infection [Fatal]
  - Infection [Fatal]
  - Multi-organ failure [Fatal]
